FAERS Safety Report 5625676-2 (Version None)
Quarter: 2008Q1

REPORT INFORMATION
  Report Type: 
  Country: None (occurrence: None)
  Receive Date: 20080214
  Receipt Date: 20080204
  Transmission Date: 20080703
  Serious: Yes (Other)
  Sender: FDA-Public Use
  Company Number: JP-JNJFOC-20070703072

PATIENT
  Sex: Male
  Weight: 53 kg

DRUGS (30)
  1. ITRIZOLE [Suspect]
     Indication: PNEUMONIA BACTERIAL
     Route: 048
  2. VELCADE [Suspect]
     Route: 042
  3. VELCADE [Suspect]
     Route: 042
  4. VELCADE [Suspect]
     Route: 042
  5. VELCADE [Suspect]
     Route: 042
  6. VELCADE [Suspect]
     Route: 042
  7. VELCADE [Suspect]
     Indication: MULTIPLE MYELOMA
     Route: 042
  8. DEXAMETHASONE TAB [Suspect]
     Route: 042
  9. DEXAMETHASONE TAB [Suspect]
     Route: 042
  10. DEXAMETHASONE TAB [Suspect]
     Route: 042
  11. DEXAMETHASONE TAB [Suspect]
     Route: 042
  12. DEXAMETHASONE TAB [Suspect]
     Route: 042
  13. DEXAMETHASONE TAB [Suspect]
     Indication: MULTIPLE MYELOMA
     Route: 042
  14. MEIACT [Suspect]
     Indication: PROPHYLAXIS
     Route: 048
  15. BAKTAR [Suspect]
     Indication: PROPHYLAXIS
     Route: 048
  16. PARIET [Concomitant]
     Indication: PROPHYLAXIS
     Route: 048
  17. AMLODIPINE BESYLATE [Concomitant]
     Indication: HYPERTENSION
     Route: 048
  18. BASEN OD [Concomitant]
     Indication: DIABETES MELLITUS
     Route: 048
  19. AMARYL [Concomitant]
     Indication: DIABETES MELLITUS
     Route: 048
  20. HARNAL D [Concomitant]
     Indication: DIABETIC NEPHROPATHY
     Route: 048
  21. ZOMETA [Concomitant]
     Route: 042
  22. ZOMETA [Concomitant]
     Route: 042
  23. FLOMOX [Concomitant]
     Indication: PNEUMONIA BACTERIAL
     Route: 048
  24. ROCEPHIN [Concomitant]
     Indication: INTERSTITIAL LUNG DISEASE
     Route: 042
  25. ROCEPHIN [Concomitant]
     Indication: PNEUMONIA BACTERIAL
     Route: 042
  26. ASPARA POTASSIUM [Concomitant]
     Route: 042
  27. ASPARA POTASSIUM [Concomitant]
     Route: 042
  28. SOLACET F [Concomitant]
     Route: 042
  29. SOLACET F [Concomitant]
     Indication: INAPPROPRIATE ANTIDIURETIC HORMONE SECRETION
     Route: 042
  30. GLUCONSAN K [Concomitant]
     Route: 048

REACTIONS (7)
  - CONDITION AGGRAVATED [None]
  - INAPPROPRIATE ANTIDIURETIC HORMONE SECRETION [None]
  - INTERSTITIAL LUNG DISEASE [None]
  - LEUKOCYTOSIS [None]
  - MULTIPLE MYELOMA [None]
  - ORTHOSTATIC HYPOTENSION [None]
  - PLATELET COUNT DECREASED [None]
